FAERS Safety Report 13436353 (Version 2)
Quarter: 2017Q2

REPORT INFORMATION
  Report Type: Spontaneous
  Country: US (occurrence: US)
  Receive Date: 20170413
  Receipt Date: 20170502
  Transmission Date: 20170830
  Serious: Yes (Hospitalization)
  Sender: FDA-Public Use
  Company Number: US-AMWAY-2017AMY00020

PATIENT
  Sex: Male

DRUGS (1)
  1. BODY SERIES ANTIBACTERIAL HAND SOAP [Suspect]
     Active Substance: TRICLOSAN
     Dosage: UNK,MULTIPLE TIMES PER DAY
     Route: 061

REACTIONS (4)
  - Escherichia infection [None]
  - Immune system disorder [Unknown]
  - Pathogen resistance [None]
  - Sepsis [Unknown]
